FAERS Safety Report 23161429 (Version 2)
Quarter: 2023Q4

REPORT INFORMATION
  Report Type: Spontaneous
  Country: JP (occurrence: JP)
  Receive Date: 20231108
  Receipt Date: 20231211
  Transmission Date: 20240110
  Serious: Yes (Hospitalization)
  Sender: FDA-Public Use
  Company Number: JP-BRISTOL-MYERS SQUIBB COMPANY-2023-159939

PATIENT
  Age: 83 Year
  Sex: Female
  Weight: 39 kg

DRUGS (6)
  1. ORENCIA [Suspect]
     Active Substance: ABATACEPT
     Indication: Rheumatoid arthritis
     Route: 058
     Dates: start: 20230428
  2. TACROLIMUS [Suspect]
     Active Substance: TACROLIMUS
     Indication: Rheumatoid arthritis
     Route: 048
  3. DEXAMETHASONE PALMITATE [Suspect]
     Active Substance: DEXAMETHASONE PALMITATE
     Indication: Rheumatoid arthritis
     Route: 041
  4. DEXAMETHASONE PALMITATE [Suspect]
     Active Substance: DEXAMETHASONE PALMITATE
     Route: 041
     Dates: start: 20230310
  5. AMPICILLIN SODIUM\SULBACTAM SODIUM [Suspect]
     Active Substance: AMPICILLIN SODIUM\SULBACTAM SODIUM
     Indication: Asthma
  6. AMINOPHYLLINE [Suspect]
     Active Substance: AMINOPHYLLINE
     Indication: Asthma

REACTIONS (3)
  - Asthma [Recovered/Resolved]
  - Urinary tract infection [Recovered/Resolved]
  - Drug eruption [Unknown]

NARRATIVE: CASE EVENT DATE: 20230620
